FAERS Safety Report 9676969 (Version 1)
Quarter: 2013Q4

REPORT INFORMATION
  Report Type: Report from Study
  Country: GB (occurrence: GB)
  Receive Date: 20131108
  Receipt Date: 20131108
  Transmission Date: 20140711
  Serious: Yes (Death)
  Sender: FDA-Public Use
  Company Number: GB-ROCHE-1301004

PATIENT
  Age: 40 Year
  Sex: 0
  Weight: 95 kg

DRUGS (1)
  1. AVASTIN [Suspect]
     Indication: GLIOBLASTOMA MULTIFORME
     Route: 065

REACTIONS (1)
  - Disease progression [Fatal]
